FAERS Safety Report 7732135-X (Version None)
Quarter: 2011Q3

REPORT INFORMATION
  Report Type: 
  Country: None (occurrence: None)
  Receive Date: 20110906
  Receipt Date: 20110811
  Transmission Date: 20111222
  Serious: No
  Sender: FDA-Public Use
  Company Number: US-AMGEN-USASP2011041188

PATIENT
  Age: 72 Year
  Sex: Female

DRUGS (9)
  1. TOPROL-XL [Concomitant]
     Dosage: UNK
  2. CALCITRIOL [Concomitant]
     Dosage: UNK
  3. MONOPRIL [Concomitant]
     Dosage: UNK
  4. PLAVIX [Concomitant]
     Dosage: UNK
  5. SYNTHROID [Concomitant]
     Dosage: UNK
  6. ZOCOR [Concomitant]
     Dosage: UNK
  7. PROLIA [Suspect]
     Indication: OSTEOPOROSIS POSTMENOPAUSAL
     Dosage: 60 MG, Q6MO
     Dates: start: 20110629
  8. LORTAB [Concomitant]
     Dosage: UNK
  9. PRILOSEC [Concomitant]

REACTIONS (1)
  - DERMATITIS [None]
